FAERS Safety Report 7892412-9 (Version None)
Quarter: 2011Q4

REPORT INFORMATION
  Report Type: 
  Country: None (occurrence: None)
  Receive Date: 20111102
  Receipt Date: 20000204
  Transmission Date: 20120403
  Serious: Yes (Hospitalization, Other)
  Sender: FDA-Public Use
  Company Number: DSA_47901_2011

PATIENT
  Age: 85 Year
  Sex: Female

DRUGS (6)
  1. ERGOCALCIFEROL [Suspect]
     Indication: PRODUCT USED FOR UNKNOWN INDICATION
     Dosage: (0.05 MG QD ORAL)
     Route: 048
     Dates: end: 19991129
  2. BRIAZIDE (BRIAZIDE - BENAZEPRIL HYDROCHLORIDE / HYDROCHLOROTHIAZIDE) ( [Suspect]
     Indication: PRODUCT USED FOR UNKNOWN INDICATION
     Dosage: 1 INTERNATIONAL UNIT ORAL)
     Route: 048
     Dates: end: 19991129
  3. CORDARONE [Suspect]
     Indication: CARDIAC DISORDER
     Dosage: (600 MG QD ORAL)
     Route: 048
     Dates: start: 19991004, end: 19991129
  4. DILTIAZEM HYDROCHLORIDE [Suspect]
     Indication: ARRHYTHMIA
     Dosage: (DF ORAL)
     Route: 048
     Dates: start: 19991004, end: 19991129
  5. CALCIUM GLUBIONATE (CALCIUM GLUBIONATE) 500 MG [Suspect]
     Dosage: (500 MG QD ORAL)
     Route: 048
     Dates: end: 19991129
  6. DIGOXIN [Suspect]
     Indication: PRODUCT USED FOR UNKNOWN INDICATION
     Dosage: (0.01 MG QD ORAL)
     Route: 048
     Dates: start: 19991004, end: 19991129

REACTIONS (8)
  - HYPOCHROMIC ANAEMIA [None]
  - LEUKOCYTOSIS [None]
  - THROMBOCYTOPENIA [None]
  - GAMMA-GLUTAMYLTRANSFERASE INCREASED [None]
  - FALL [None]
  - PROTHROMBIN TIME SHORTENED [None]
  - ALANINE AMINOTRANSFERASE INCREASED [None]
  - ASPARTATE AMINOTRANSFERASE INCREASED [None]
